FAERS Safety Report 8004093-4 (Version None)
Quarter: 2011Q4

REPORT INFORMATION
  Report Type: 
  Country: None (occurrence: None)
  Receive Date: 20111222
  Receipt Date: 20111212
  Transmission Date: 20120403
  Serious: Yes (Other)
  Sender: FDA-Public Use
  Company Number: US-ASTRAZENECA-2011SE61464

PATIENT
  Age: 6426 Day
  Sex: Female
  Weight: 77.2 kg

DRUGS (8)
  1. RHINOCORT [Concomitant]
     Indication: RHINITIS ALLERGIC
     Dosage: BID
     Route: 045
     Dates: start: 20110926
  2. SINGULAIR [Concomitant]
     Indication: ASTHMA
     Route: 048
     Dates: end: 20110801
  3. PROAIR HFA [Concomitant]
     Indication: ASTHMA
     Dosage: TWO PUFFS TID - QID PRN
     Route: 048
  4. PULMICORT FLEXHALER [Suspect]
     Dosage: TWO PUFFS BID
     Route: 055
     Dates: start: 20110926
  5. ALLEGRA [Concomitant]
     Indication: RHINITIS ALLERGIC
     Route: 048
     Dates: start: 20111003
  6. PULMICORT FLEXHALER [Suspect]
     Indication: ASTHMA
     Dosage: 1 PUFF,TWO TIMES A DAY
     Route: 055
     Dates: end: 20110801
  7. PULMICORT FLEXHALER [Suspect]
     Dosage: TWO INHALATIONS, TWICE DAILY
     Route: 055
  8. SINGULAIR [Concomitant]
     Indication: HYPERSENSITIVITY
     Route: 048
     Dates: end: 20110801

REACTIONS (1)
  - SKIN STRIAE [None]
